FAERS Safety Report 5287556-4 (Version None)
Quarter: 2007Q1

REPORT INFORMATION
  Report Type: 
  Country: None (occurrence: None)
  Receive Date: 20070126
  Receipt Date: 20061024
  Transmission Date: 20070707
  Serious: No
  Sender: FDA-Public Use
  Company Number: 2006CT000810

PATIENT
  Age: 54 Year
  Sex: Female
  Weight: 64.4108 kg

DRUGS (9)
  1. VENTAVIS [Suspect]
     Indication: PULMONARY HYPERTENSION
     Dosage: 2.5 UG;6XD;INH
     Route: 055
     Dates: start: 20060922
  2. SILDENAFIL CITRATE [Concomitant]
  3. VALSARTAN [Concomitant]
  4. CHLORTALIDONE/ATENOLOL [Concomitant]
  5. WARFARIN SODIUM [Concomitant]
  6. AZATHIOPRINE [Concomitant]
  7. ALBUTEROL [Concomitant]
  8. ADVAIR DISKUS 100/50 [Concomitant]
  9. TYLENOL EXTRA-STRENGTH [Concomitant]

REACTIONS (4)
  - ALOPECIA [None]
  - FLUSHING [None]
  - INSOMNIA [None]
  - NIGHT SWEATS [None]
